FAERS Safety Report 8282026-3 (Version None)
Quarter: 2012Q2

REPORT INFORMATION
  Report Type: 
  Country: None (occurrence: None)
  Receive Date: 20120413
  Receipt Date: 20120406
  Transmission Date: 20120825
  Serious: Yes (Other)
  Sender: FDA-Public Use
  Company Number: SI-ASTELLAS-2012EU002657

PATIENT
  Age: 3 Year
  Sex: Male

DRUGS (3)
  1. PROGRAF [Suspect]
     Indication: LIVER TRANSPLANT
     Dosage: 1.6 MG, UNKNOWN/D
     Route: 048
     Dates: start: 20090101
  2. VITAMIN D [Concomitant]
     Indication: OSTEOPENIA
     Dosage: UNK
     Route: 065
  3. CALCIUM CARBONATE [Concomitant]
     Indication: OSTEOPENIA
     Dosage: UNK
     Route: 065

REACTIONS (2)
  - STRIDOR [None]
  - RESPIRATORY TRACT INFECTION [None]
